FAERS Safety Report 10169222 (Version 1)
Quarter: 2014Q2

REPORT INFORMATION
  Report Type: Spontaneous
  Country: US (occurrence: US)
  Receive Date: 20140513
  Receipt Date: 20140513
  Transmission Date: 20141212
  Serious: No
  Sender: FDA-Public Use
  Company Number: US-TEVA-481379USA

PATIENT
  Sex: Female
  Weight: 98.52 kg

DRUGS (3)
  1. PLAN B [Suspect]
     Indication: POST COITAL CONTRACEPTION
     Dosage: 1.5 MILLIGRAM DAILY;
     Route: 048
     Dates: start: 2012, end: 2012
  2. PLAN B [Suspect]
     Dosage: 1.5 MILLIGRAM DAILY;
     Route: 048
     Dates: start: 2012, end: 2012
  3. PLAN B [Suspect]
     Dosage: 1.5 MILLIGRAM DAILY;
     Route: 048
     Dates: start: 2012, end: 2012

REACTIONS (3)
  - Mood swings [Recovered/Resolved]
  - Pelvic pain [Recovered/Resolved]
  - Menstruation irregular [Recovered/Resolved]
